FAERS Safety Report 4501407-4 (Version None)
Quarter: 2004Q4

REPORT INFORMATION
  Report Type: 
  Country: None (occurrence: None)
  Receive Date: 20041110
  Receipt Date: 20041027
  Transmission Date: 20050328
  Serious: Yes (Other)
  Sender: FDA-Public Use
  Company Number: US014213

PATIENT

DRUGS (1)
  1. GABITRIL [Suspect]
     Indication: INSOMNIA
     Dosage: 10 MG ORAL
     Route: 048

REACTIONS (2)
  - CONVULSION [None]
  - MEDICATION ERROR [None]
